FAERS Safety Report 6727618-5 (Version None)
Quarter: 2010Q2

REPORT INFORMATION
  Report Type: 
  Country: None (occurrence: None)
  Receive Date: 20100517
  Receipt Date: 20100517
  Transmission Date: 20101027
  Serious: Yes (Hospitalization)
  Sender: FDA-Public Use
  Company Number: None

PATIENT
  Age: 14 Month
  Sex: Male
  Weight: 12.2471 kg

DRUGS (2)
  1. MOTRIN [Suspect]
  2. TYLENOL (CAPLET) [Suspect]

REACTIONS (8)
  - BACTERIAL INFECTION [None]
  - CRYING [None]
  - DIARRHOEA [None]
  - EATING DISORDER [None]
  - MALAISE [None]
  - NAUSEA [None]
  - PRODUCT QUALITY ISSUE [None]
  - PYREXIA [None]
